FAERS Safety Report 12986284 (Version 1)
Quarter: 2016Q4

REPORT INFORMATION
  Report Type: Spontaneous
  Country: US (occurrence: US)
  Receive Date: 20161129
  Receipt Date: 20161129
  Transmission Date: 20170207
  Serious: Yes (Death, Hospitalization)
  Sender: FDA-Public Use
  Company Number: None

PATIENT
  Age: 2 Year
  Sex: Female
  Weight: 14.2 kg

DRUGS (6)
  1. CYTARABINE. [Suspect]
     Active Substance: CYTARABINE
     Dates: end: 20161110
  2. METHOTREXATE. [Suspect]
     Active Substance: METHOTREXATE
     Dates: end: 20161024
  3. VINCRISTINE SULFATE. [Suspect]
     Active Substance: VINCRISTINE SULFATE
     Dates: end: 20161121
  4. MERCAPTOPURINE. [Suspect]
     Active Substance: MERCAPTOPURINE
     Dates: end: 20161113
  5. CYCLOPHOSPHAMIDE. [Suspect]
     Active Substance: CYCLOPHOSPHAMIDE
     Dates: end: 20161031
  6. ONCASPAR [Suspect]
     Active Substance: PEGASPARGASE
     Dates: end: 20161114

REACTIONS (15)
  - Nausea [None]
  - Blood pressure decreased [None]
  - Respiratory tract oedema [None]
  - Anaemia [None]
  - Hypoxia [None]
  - Unresponsive to stimuli [None]
  - Irritability [None]
  - Heart rate increased [None]
  - Local swelling [None]
  - Dyspnoea [None]
  - Vomiting [None]
  - Pulmonary haemorrhage [None]
  - Pyrexia [None]
  - Pancytopenia [None]
  - Bacillus test positive [None]

NARRATIVE: CASE EVENT DATE: 20161122
